FAERS Safety Report 8140936-1 (Version None)
Quarter: 2012Q1

REPORT INFORMATION
  Report Type: 
  Country: None (occurrence: None)
  Receive Date: 20120214
  Receipt Date: 20120214
  Transmission Date: 20120608
  Serious: Yes (Other)
  Sender: FDA-Public Use
  Company Number: None

PATIENT
  Age: 42 Year
  Sex: Female
  Weight: 62.3 kg

DRUGS (1)
  1. DALFAMPRIDINE [Suspect]
     Dosage: 10 MG BID PO
     Route: 048
     Dates: start: 20110420, end: 20110502

REACTIONS (1)
  - HEADACHE [None]
